FAERS Safety Report 7818843-0 (Version None)
Quarter: 2011Q4

REPORT INFORMATION
  Report Type: 
  Country: None (occurrence: None)
  Receive Date: 20111018
  Receipt Date: 20090924
  Transmission Date: 20120403
  Serious: No
  Sender: FDA-Public Use
  Company Number: 2008BI002008

PATIENT
  Age: 42 Year
  Sex: Female

DRUGS (1)
  1. TYSABRI [Suspect]
     Indication: MULTIPLE SCLEROSIS
     Route: 042
     Dates: start: 20070803, end: 20080411

REACTIONS (14)
  - CONJUNCTIVITIS INFECTIVE [None]
  - ORAL HERPES [None]
  - PAIN [None]
  - UPPER RESPIRATORY TRACT INFECTION [None]
  - VISION BLURRED [None]
  - SINUSITIS [None]
  - TONSILLITIS [None]
  - MALAISE [None]
  - EAR INFECTION [None]
  - ASTHENIA [None]
  - MULTIPLE SCLEROSIS RELAPSE [None]
  - STREPTOCOCCAL INFECTION [None]
  - COUGH [None]
  - PHARYNGITIS [None]
